FAERS Safety Report 21309753 (Version 1)
Quarter: 2022Q3

REPORT INFORMATION
  Report Type: Report from Study
  Country: US (occurrence: US)
  Receive Date: 20220908
  Receipt Date: 20220908
  Transmission Date: 20221027
  Serious: Yes (Other)
  Sender: FDA-Public Use
  Company Number: US-ABBVIE-22K-163-4531607-00

PATIENT
  Sex: Female

DRUGS (1)
  1. SYNTHROID [Suspect]
     Active Substance: LEVOTHYROXINE SODIUM
     Indication: Product used for unknown indication
     Route: 048

REACTIONS (6)
  - Papillary thyroid cancer [Unknown]
  - Dry skin [Unknown]
  - Dry eye [Unknown]
  - Fatigue [Unknown]
  - Arthralgia [Unknown]
  - Alopecia [Unknown]
